FAERS Safety Report 23786557 (Version 1)
Quarter: 2024Q2

REPORT INFORMATION
  Report Type: Spontaneous
  Country: US (occurrence: US)
  Receive Date: 20240426
  Receipt Date: 20240426
  Transmission Date: 20240716
  Serious: No
  Sender: FDA-Public Use
  Company Number: US-Accord-406591

PATIENT
  Sex: Male

DRUGS (1)
  1. OXYBUTYNIN [Suspect]
     Active Substance: OXYBUTYNIN\OXYBUTYNIN CHLORIDE
     Indication: Product used for unknown indication
     Dosage: STRENGTH: 5 MG; BEFORE BEDTIME?TAKING FOR THE PAST SEVERAL WEEKS
     Route: 048

REACTIONS (4)
  - Drug ineffective [Unknown]
  - Pollakiuria [Unknown]
  - Product substitution issue [Unknown]
  - Drug intolerance [Unknown]
